FAERS Safety Report 20678754 (Version 1)
Quarter: 2022Q2

REPORT INFORMATION
  Report Type: Spontaneous
  Country: US (occurrence: None)
  Receive Date: 20220404
  Receipt Date: 20220404
  Transmission Date: 20220720
  Serious: No
  Sender: FDA-Public Use
  Company Number: None

PATIENT
  Sex: Female

DRUGS (1)
  1. HUMIRA [Suspect]
     Active Substance: ADALIMUMAB
     Indication: Psoriasis
     Dosage: OTHER QUANTITY : 40MG/0.8ML;?INJECT 1 PEN UNDER THE SKIN (SUBCUTANEOUS  INJECTION) EVERY 2 WEEKS?
     Route: 058
     Dates: start: 20210224

REACTIONS (3)
  - Condition aggravated [None]
  - Rash [None]
  - Product dose omission issue [None]
